FAERS Safety Report 5278780-5 (Version None)
Quarter: 2007Q1

REPORT INFORMATION
  Report Type: 
  Country: None (occurrence: None)
  Receive Date: 20070328
  Receipt Date: 20070326
  Transmission Date: 20070707
  Serious: Yes (Other)
  Sender: FDA-Public Use
  Company Number: IT-BRISTOL-MYERS SQUIBB COMPANY-13727417

PATIENT
  Age: 25 Year
  Sex: Female

DRUGS (5)
  1. BLEOMYCIN [Suspect]
     Indication: HODGKIN'S DISEASE
  2. DOXORUBICIN HCL [Suspect]
     Indication: HODGKIN'S DISEASE
  3. DACARBAZINE [Suspect]
     Indication: HODGKIN'S DISEASE
  4. VINBLASTINE SULFATE [Suspect]
     Indication: HODGKIN'S DISEASE
  5. RADIOTHERAPY [Suspect]
     Indication: HODGKIN'S DISEASE

REACTIONS (1)
  - CAROTID ARTERY THROMBOSIS [None]
